FAERS Safety Report 6316762-2 (Version None)
Quarter: 2009Q3

REPORT INFORMATION
  Report Type: 
  Country: None (occurrence: None)
  Receive Date: 20090820
  Receipt Date: 20090810
  Transmission Date: 20100115
  Serious: Yes (Disabling, Other)
  Sender: FDA-Public Use
  Company Number: GB-ABBOTT-09P-167-0578858-00

PATIENT
  Sex: Female
  Weight: 88.9 kg

DRUGS (7)
  1. KALETRA [Interacting]
     Indication: HIV INFECTION
     Route: 048
     Dates: start: 20070808, end: 20090506
  2. SERETIDE [Suspect]
     Indication: CHRONIC OBSTRUCTIVE PULMONARY DISEASE
     Dosage: TWO PUFFS A DAY
     Route: 055
  3. FLUTICASONE [Interacting]
     Indication: DRUG USE FOR UNKNOWN INDICATION
  4. COMBIVIR [Concomitant]
     Indication: HIV INFECTION
     Route: 048
  5. QVAR 40 [Concomitant]
     Indication: CHRONIC OBSTRUCTIVE PULMONARY DISEASE
     Dosage: TWO PUFFS A DAY
     Route: 055
     Dates: start: 20090507
  6. SEREVENT [Concomitant]
     Indication: CHRONIC OBSTRUCTIVE PULMONARY DISEASE
     Route: 055
     Dates: start: 20090507
  7. EFFEXOR XR [Concomitant]
     Indication: DEPRESSION

REACTIONS (4)
  - ADRENAL INSUFFICIENCY [None]
  - CUSHING'S SYNDROME [None]
  - DRUG INTERACTION [None]
  - UNEVALUABLE EVENT [None]
